FAERS Safety Report 20630061 (Version 2)
Quarter: 2022Q2

REPORT INFORMATION
  Report Type: Spontaneous
  Country: PK (occurrence: PK)
  Receive Date: 20220324
  Receipt Date: 20220407
  Transmission Date: 20220721
  Serious: Yes (Death)
  Sender: FDA-Public Use
  Company Number: PK-NOVOPROD-900793

PATIENT
  Age: 57 Year
  Sex: Female

DRUGS (1)
  1. RYZODEG 70/30 [Suspect]
     Active Substance: INSULIN ASPART\INSULIN DEGLUDEC
     Indication: Diabetes mellitus
     Dosage: 48 IU, QD
     Route: 058
     Dates: start: 20210625, end: 20220216

REACTIONS (2)
  - Myocardial infarction [Fatal]
  - Blood glucose increased [Unknown]
